FAERS Safety Report 6289146-3 (Version None)
Quarter: 2009Q3

REPORT INFORMATION
  Report Type: 
  Country: None (occurrence: None)
  Receive Date: 20090728
  Receipt Date: 20090720
  Transmission Date: 20100115
  Serious: Yes (Death, Hospitalization)
  Sender: FDA-Public Use
  Company Number: 2009SP015609

PATIENT
  Age: 67 Year
  Sex: Male
  Weight: 77 kg

DRUGS (10)
  1. TEMODAL [Suspect]
     Indication: GLIOBLASTOMA
     Dosage: 100 MG/M2
     Dates: start: 20090508
  2. KEPPRA [Concomitant]
  3. PANTOZOL [Concomitant]
  4. FRISIUM [Concomitant]
  5. MELNEURIN [Concomitant]
  6. FORTECORTIN [Concomitant]
  7. COTRIM [Concomitant]
  8. PASPERTIN [Concomitant]
  9. KEVATRIL [Concomitant]
  10. ZOPICLON [Concomitant]

REACTIONS (15)
  - BLOOD POTASSIUM DECREASED [None]
  - BLOOD SODIUM INCREASED [None]
  - CYTOMEGALOVIRUS INFECTION [None]
  - EPSTEIN-BARR VIRUS INFECTION [None]
  - HAEMATOCRIT DECREASED [None]
  - HAEMOGLOBIN DECREASED [None]
  - HEMIPARESIS [None]
  - HERPES VIRUS INFECTION [None]
  - MULTI-ORGAN FAILURE [None]
  - NEUTROPENIA [None]
  - PLATELET COUNT DECREASED [None]
  - PLEURAL EFFUSION [None]
  - PNEUMONIA [None]
  - RESPIRATORY FAILURE [None]
  - SEPSIS [None]
